FAERS Safety Report 8937125 (Version 3)
Quarter: 2013Q1

REPORT INFORMATION
  Report Type: Spontaneous
  Country: GB (occurrence: None)
  Receive Date: 20121121
  Receipt Date: 20130328
  Transmission Date: 20140127
  Serious: Yes (Death, Hospitalization)
  Sender: FDA-Public Use
  Company Number: AUR-APL-2012-04865

PATIENT
  Age: 70 Year
  Sex: Female
  Weight: 82.6 kg

DRUGS (3)
  1. MIRTAZAPINE (MIRTAZAPINE) [Suspect]
     Indication: PRODUCT USED FOR UNKNOWN INDICATION
  2. RISPERIDONE (RISPERIDONE) [Suspect]
     Indication: PRODUCT USED FOR UNKNOWN INDICATION
  3. DIAZEPAM (DIAZEPAM) [Suspect]
     Indication: PRODUCT USED FOR UNKNOWN INDICATION

REACTIONS (13)
  - Dehydration [None]
  - Neuroleptic malignant syndrome [None]
  - Paralysis [None]
  - Cholecystitis [None]
  - Coma [None]
  - Sedation [None]
  - Cystitis escherichia [None]
  - Catatonia [None]
  - Urinary tract infection [None]
  - Bedridden [None]
  - Local swelling [None]
  - Swelling face [None]
  - Aphagia [None]
